FAERS Safety Report 8165288-2 (Version None)
Quarter: 2012Q1

REPORT INFORMATION
  Report Type: 
  Country: None (occurrence: None)
  Receive Date: 20120223
  Receipt Date: 20120223
  Transmission Date: 20120608
  Serious: Yes (Other)
  Sender: FDA-Public Use
  Company Number: None

PATIENT
  Age: 81 Year
  Sex: Female
  Weight: 66.2252 kg

DRUGS (6)
  1. RECLAST [Suspect]
     Dosage: 5MG X 1 PER YEAR IV INFUSION OVER 30 MINUTES
     Route: 042
     Dates: start: 20101001
  2. LOVASTATIN [Concomitant]
  3. SYNTHROID [Concomitant]
  4. ASPIRIN [Concomitant]
  5. TOPROL-XL [Concomitant]
  6. RHINOCORT [Concomitant]

REACTIONS (2)
  - OSTEONECROSIS OF JAW [None]
  - PAIN [None]
